FAERS Safety Report 9553859 (Version 1)
Quarter: 2013Q3

REPORT INFORMATION
  Report Type: Spontaneous
  Country: BR (occurrence: BR)
  Receive Date: 20130925
  Receipt Date: 20130925
  Transmission Date: 20140515
  Serious: Yes (Hospitalization)
  Sender: FDA-Public Use
  Company Number: BR-ASTRAZENECA-2013SE70147

PATIENT
  Age: 32 Year
  Sex: Male

DRUGS (5)
  1. SEROQUEL XRO [Suspect]
     Indication: DEPRESSION
     Route: 048
     Dates: start: 201306, end: 20130912
  2. SEROQUEL XRO [Suspect]
     Indication: DEPRESSION
     Dosage: 100 MG IN THE AFTERNOON
     Route: 048
  3. GABAPENTIN [Concomitant]
  4. BENERVA [Concomitant]
  5. ZOLPIDEM [Concomitant]

REACTIONS (1)
  - Substance use [Not Recovered/Not Resolved]
